FAERS Safety Report 20974493 (Version 1)
Quarter: 2022Q2

REPORT INFORMATION
  Report Type: Spontaneous
  Country: US (occurrence: None)
  Receive Date: 20220616
  Receipt Date: 20220616
  Transmission Date: 20220720
  Serious: Yes (Hospitalization)
  Sender: FDA-Public Use
  Company Number: None

PATIENT
  Sex: Female

DRUGS (2)
  1. CAPECITABINE [Suspect]
     Active Substance: CAPECITABINE
     Indication: Takayasu^s arteritis
     Dosage: TAKE 3 TABLETS BY MOUTH TWICE DAILY FA 14 DAYS OF EVERY 21 DAY CYCLE
     Route: 048
     Dates: start: 20220310
  2. CAPECITABINE [Suspect]
     Active Substance: CAPECITABINE
     Indication: Breast cancer female

REACTIONS (1)
  - Hospitalisation [None]
